FAERS Safety Report 25662755 (Version 1)
Quarter: 2025Q3

REPORT INFORMATION
  Report Type: Spontaneous
  Country: CA (occurrence: CA)
  Receive Date: 20250811
  Receipt Date: 20250811
  Transmission Date: 20251021
  Serious: Yes (Life-Threatening, Hospitalization, Other)
  Sender: TEVA
  Company Number: CA-TEVA-VS-3361547

PATIENT
  Age: 47 Year
  Sex: Male
  Weight: 111 kg

DRUGS (1)
  1. SULFAMETHOXAZOLE\TRIMETHOPRIM [Suspect]
     Active Substance: SULFAMETHOXAZOLE\TRIMETHOPRIM
     Indication: Prostatitis
     Dosage: DOSE FORM: NOT SPECIFIED
     Route: 048

REACTIONS (4)
  - Type IV hypersensitivity reaction [Recovered/Resolved]
  - Rash pruritic [Recovered/Resolved]
  - Eosinophilia [Recovered/Resolved]
  - Oedema [Recovered/Resolved]
